FAERS Safety Report 9444028 (Version 1)
Quarter: 2013Q3

REPORT INFORMATION
  Report Type: Spontaneous
  Country: US (occurrence: US)
  Receive Date: 20130807
  Receipt Date: 20130807
  Transmission Date: 20140515
  Serious: No
  Sender: FDA-Public Use
  Company Number: US-009507513-1307USA006198

PATIENT
  Age: 26 Year
  Sex: Male

DRUGS (2)
  1. PROVENTIL [Suspect]
     Indication: ASTHMA
     Dosage: UNK, PRN
     Route: 055
     Dates: start: 201212
  2. ESOMEPRAZOLE [Concomitant]

REACTIONS (4)
  - Dysphagia [Unknown]
  - Dyspnoea [Unknown]
  - Product quality issue [Unknown]
  - Drug dose omission [Unknown]
